FAERS Safety Report 5474594-1 (Version None)
Quarter: 2007Q4

REPORT INFORMATION
  Report Type: 
  Country: None (occurrence: None)
  Receive Date: 20071002
  Receipt Date: 20070927
  Transmission Date: 20080405
  Serious: Yes (Life-Threatening, Other)
  Sender: FDA-Public Use
  Company Number: PHBS2007JP12896

PATIENT
  Age: 57 Year
  Sex: Male
  Weight: 59 kg

DRUGS (16)
  1. LASIX [Suspect]
     Indication: CARDIAC FAILURE CONGESTIVE
     Dosage: 20 MG/DAY
     Route: 048
     Dates: start: 20070612, end: 20070713
  2. ALDACTONE [Suspect]
     Indication: CARDIAC FAILURE CONGESTIVE
     Dosage: 25 MG/DAY
     Route: 048
     Dates: start: 20070627, end: 20070720
  3. TENORMIN [Suspect]
     Indication: ATRIAL FIBRILLATION
     Dosage: 25 MG/DAY
     Route: 048
     Dates: start: 20040401, end: 20070720
  4. MICARDIS [Suspect]
     Indication: CARDIAC FAILURE CONGESTIVE
     Dosage: 20 MG/DAY
     Route: 048
     Dates: start: 20040401, end: 20070720
  5. WARFARIN SODIUM [Suspect]
     Indication: ATRIAL FIBRILLATION
     Dosage: 3 MG/DAY
     Route: 048
     Dates: start: 20070607, end: 20070709
  6. UNASYN [Concomitant]
     Dosage: 6 G/DAY
     Route: 048
     Dates: start: 20070602, end: 20070609
  7. GENTACIN [Concomitant]
     Dosage: 80 MG/DAY
     Route: 041
     Dates: start: 20070602, end: 20070609
  8. PROPYLTHIOURACIL [Suspect]
     Dosage: 300 MG/DAY
     Route: 048
     Dates: start: 19870101, end: 20070712
  9. PROPYLTHIOURACIL [Suspect]
     Dosage: 200 MG/DAY
     Route: 048
     Dates: start: 20070713, end: 20070720
  10. PROPYLTHIOURACIL [Suspect]
     Dosage: 300 MG/DAY
     Route: 048
     Dates: start: 20070803
  11. MUCOSTA [Suspect]
     Indication: GASTRIC MUCOSAL LESION
     Dosage: 300 MG/DAY
     Route: 048
     Dates: start: 20070518, end: 20070713
  12. SIGMART [Suspect]
     Indication: ANGINA PECTORIS
     Dosage: 15 MG/DAY
     Route: 048
     Dates: start: 20040401, end: 20070713
  13. BEPRICOR [Suspect]
     Indication: ATRIAL FIBRILLATION
     Dosage: 150 MG/DAY
     Route: 048
     Dates: start: 20070702, end: 20070720
  14. NITRODERM [Suspect]
     Indication: ANGINA PECTORIS
     Dosage: 1 PATCH/DAY
     Route: 062
     Dates: start: 20070713
  15. AMLODIPINE BESYLATE [Suspect]
     Indication: ANGINA PECTORIS
     Dates: start: 20040401
  16. ASPIRIN [Suspect]
     Dosage: 100MG
     Route: 048
     Dates: end: 20070712

REACTIONS (9)
  - DYSPNOEA [None]
  - HAEMATOCRIT DECREASED [None]
  - HAEMOGLOBIN DECREASED [None]
  - HAEMORRHAGIC DIATHESIS [None]
  - PERICARDIAL EFFUSION [None]
  - PLATELET COUNT DECREASED [None]
  - RASH MACULO-PAPULAR [None]
  - THROMBOCYTOPENIC PURPURA [None]
  - WHITE BLOOD CELL COUNT DECREASED [None]
